FAERS Safety Report 20838215 (Version 1)
Quarter: 2022Q2

REPORT INFORMATION
  Report Type: Spontaneous
  Country: US (occurrence: US)
  Receive Date: 20220517
  Receipt Date: 20220517
  Transmission Date: 20220720
  Serious: No
  Sender: FDA-Public Use
  Company Number: US-NOVARTISTESTPH-NVSC2022US113079

PATIENT
  Sex: Female

DRUGS (2)
  1. COSENTYX [Suspect]
     Active Substance: SECUKINUMAB
     Indication: Psoriasis
     Dosage: UNK, UNKNOWN
     Route: 065
  2. OTEZLA [Suspect]
     Active Substance: APREMILAST
     Indication: Psoriasis
     Dosage: UNK, UNKNOWN
     Route: 065

REACTIONS (6)
  - Pruritus [Unknown]
  - Fatigue [Unknown]
  - Diarrhoea [Unknown]
  - Dandruff [Unknown]
  - Drug ineffective [Unknown]
  - Incorrect dose administered [Unknown]
